FAERS Safety Report 4765588-X (Version None)
Quarter: 2005Q3

REPORT INFORMATION
  Report Type: 
  Country: None (occurrence: None)
  Receive Date: 20050906
  Receipt Date: 20050824
  Transmission Date: 20060218
  Serious: Yes (Hospitalization)
  Sender: FDA-Public Use
  Company Number: 2005120445

PATIENT
  Age: 65 Year
  Sex: Female

DRUGS (2)
  1. FLUCONAZOLE [Suspect]
     Indication: ORAL CANDIDIASIS
     Dosage: 200 MG (UNKNOWN), ORAL
     Route: 048
     Dates: start: 20000701
  2. CORTICOSTEROIDS (CORTICOSTEROIDS) [Concomitant]

REACTIONS (3)
  - DERMATITIS BULLOUS [None]
  - DYSPHAGIA [None]
  - ERYTHEMA MULTIFORME [None]
